FAERS Safety Report 4667454-7 (Version None)
Quarter: 2005Q2

REPORT INFORMATION
  Report Type: 
  Country: None (occurrence: None)
  Receive Date: 20050520
  Receipt Date: 20050224
  Transmission Date: 20051028
  Serious: Yes (Disabling)
  Sender: FDA-Public Use
  Company Number: PHEH2005US02470

PATIENT
  Sex: Male
  Weight: 68 kg

DRUGS (1)
  1. AREDIA [Suspect]
     Indication: BREAST CANCER METASTATIC
     Dosage: UNK, QMO
     Dates: start: 20010101, end: 20031103

REACTIONS (2)
  - JAW DISORDER [None]
  - OSTEONECROSIS [None]
